FAERS Safety Report 5019845-2 (Version None)
Quarter: 2006Q2

REPORT INFORMATION
  Report Type: 
  Country: None (occurrence: None)
  Receive Date: 20060601
  Receipt Date: 20060519
  Transmission Date: 20061013
  Serious: Yes (Hospitalization)
  Sender: FDA-Public Use
  Company Number: 2006067000

PATIENT
  Age: 32 Year
  Sex: Male
  Weight: 60 kg

DRUGS (2)
  1. PIROXICAM [Suspect]
     Indication: RHEUMATOID ARTHRITIS
     Dosage: 40 MG, OD INTERVAL: ONLY ONCE GIVEN), INTRAMUSCULAR
     Route: 030
  2. RENACORT (TRIAMCINOLONE) [Concomitant]

REACTIONS (8)
  - DIZZINESS [None]
  - DYSPNOEA [None]
  - FEAR [None]
  - FREQUENT BOWEL MOVEMENTS [None]
  - HEADACHE [None]
  - OCULAR HYPERAEMIA [None]
  - PULSE ABSENT [None]
  - VOMITING [None]
